FAERS Safety Report 11394019 (Version 1)
Quarter: 2015Q3

REPORT INFORMATION
  Report Type: Spontaneous
  Country: US (occurrence: None)
  Receive Date: 20150817
  Receipt Date: 20150817
  Transmission Date: 20151125
  Serious: Yes (Other)
  Sender: FDA-Public Use
  Company Number: None

PATIENT
  Age: 51 Year
  Sex: Female
  Weight: 78.93 kg

DRUGS (14)
  1. VITAMIN D3 [Concomitant]
     Active Substance: CHOLECALCIFEROL
  2. CALCIUM [Concomitant]
     Active Substance: CALCIUM
  3. FLONASE [Suspect]
     Active Substance: FLUTICASONE PROPIONATE
     Indication: RHINITIS
     Dosage: 2 SPRAYS PER SOSTRIL
     Route: 055
     Dates: start: 20150804, end: 20150809
  4. LOSARTAN POTASSIUM. [Concomitant]
     Active Substance: LOSARTAN POTASSIUM
  5. FLONASE [Concomitant]
     Active Substance: FLUTICASONE PROPIONATE
  6. 5-HTP [Concomitant]
     Active Substance: OXITRIPTAN
  7. FLONASE [Suspect]
     Active Substance: FLUTICASONE PROPIONATE
     Indication: NASAL CONGESTION
     Dosage: 2 SPRAYS PER SOSTRIL
     Route: 055
     Dates: start: 20150804, end: 20150809
  8. EYEBRIGHT [Concomitant]
  9. INSULIN PUMP [Concomitant]
     Active Substance: INSULIN NOS
  10. ADVIL ALLERGY AND CONGESTION RELIEF [Concomitant]
     Active Substance: CHLORPHENIRAMINE MALEATE\IBUPROFEN\PHENYLEPHRINE HYDROCHLORIDE
  11. FISH OIL [Concomitant]
     Active Substance: FISH OIL
  12. NOVOLOG INSULIN [Concomitant]
  13. MAGNESIUM [Concomitant]
     Active Substance: MAGNESIUM
  14. COQ10 [Concomitant]
     Active Substance: UBIDECARENONE

REACTIONS (10)
  - Physical product label issue [None]
  - Anger [None]
  - Anxiety [None]
  - Irritability [None]
  - Mood swings [None]
  - Blood glucose increased [None]
  - Menstrual disorder [None]
  - Dyspnoea [None]
  - Depressed level of consciousness [None]
  - Insomnia [None]

NARRATIVE: CASE EVENT DATE: 20150804
